FAERS Safety Report 24591661 (Version 2)
Quarter: 2025Q1

REPORT INFORMATION
  Report Type: Spontaneous
  Country: JP (occurrence: JP)
  Receive Date: 20241108
  Receipt Date: 20250330
  Transmission Date: 20250408
  Serious: No
  Sender: ASTELLAS
  Company Number: JP-ASTELLAS-2024-AER-011606

PATIENT
  Age: 61 Year
  Sex: Male

DRUGS (2)
  1. PADCEV [Suspect]
     Active Substance: ENFORTUMAB VEDOTIN-EJFV
     Indication: Bladder cancer
     Route: 065
     Dates: start: 20241001, end: 20241001
  2. KEYTRUDA [Suspect]
     Active Substance: PEMBROLIZUMAB
     Indication: Product used for unknown indication
     Route: 065
     Dates: start: 20241001, end: 20241001

REACTIONS (1)
  - Diarrhoea [Not Recovered/Not Resolved]

NARRATIVE: CASE EVENT DATE: 20241004
